FAERS Safety Report 6831516-6 (Version None)
Quarter: 2010Q2

REPORT INFORMATION
  Report Type: 
  Country: None (occurrence: None)
  Receive Date: 20100520
  Receipt Date: 20090604
  Transmission Date: 20101027
  Serious: Yes (Other)
  Sender: FDA-Public Use
  Company Number: 2009223543

PATIENT
  Age: 61 Year
  Sex: Female

DRUGS (11)
  1. PROVERA [Suspect]
     Indication: HORMONE REPLACEMENT THERAPY
     Dosage: 2.5 MG, ORAL
     Route: 048
     Dates: start: 19820101, end: 19960101
  2. PREMARIN [Suspect]
     Indication: HORMONE REPLACEMENT THERAPY
     Dosage: 0.625 MG
     Dates: start: 19900101, end: 19960101
  3. PREMARIN [Suspect]
     Indication: HORMONE REPLACEMENT THERAPY
     Dosage: 0.625 MG, VAGINAL
     Route: 067
     Dates: start: 19901201
  4. PREMPRO [Suspect]
     Indication: HORMONE REPLACEMENT THERAPY
     Dosage: 0.625/2.5MG
     Dates: start: 19970101, end: 19970201
  5. COZAAR [Concomitant]
  6. SYNTHROID [Concomitant]
  7. NIACIN [Concomitant]
  8. TRAMADOL HCL [Concomitant]
  9. VITAMINS [Concomitant]
  10. OSCAL 500-D (CALCIUM, COLECALCIFEROL) [Concomitant]
  11. CALCIUM (CALCIUM) [Concomitant]

REACTIONS (1)
  - BREAST CANCER FEMALE [None]
